FAERS Safety Report 19773234 (Version 1)
Quarter: 2021Q3

REPORT INFORMATION
  Report Type: Report from Study
  Country: CA (occurrence: CA)
  Receive Date: 20210901
  Receipt Date: 20210901
  Transmission Date: 20211014
  Serious: Yes (Hospitalization)
  Sender: FDA-Public Use
  Company Number: CA-OTSUKA-2021_029744

PATIENT
  Age: 90 Year
  Sex: Female

DRUGS (2)
  1. TOLVAPTAN [Suspect]
     Active Substance: TOLVAPTAN
     Indication: HYPONATRAEMIA
     Dosage: UNK
     Route: 048
     Dates: start: 202011, end: 202104
  2. TOLVAPTAN [Suspect]
     Active Substance: TOLVAPTAN
     Dosage: 15 MG, QD
     Route: 048
     Dates: start: 20210823

REACTIONS (3)
  - Incorrect dose administered [Unknown]
  - Blood electrolytes abnormal [Unknown]
  - Therapy cessation [Unknown]

NARRATIVE: CASE EVENT DATE: 202104
